FAERS Safety Report 8777951 (Version 1)
Quarter: 2012Q4

REPORT INFORMATION
  Report Type: 
  Country: US (occurrence: US)
  Receive Date: 20120911
  Receipt Date: 20120911
  Transmission Date: 20130627
  Serious: No
  Sender: FDA-Public Use
  Company Number: US-BAYER-2012-091732

PATIENT
  Age: 58 Year
  Sex: Female

DRUGS (1)
  1. CLIMARA PRO [Suspect]
     Dosage: UNK

REACTIONS (6)
  - Product adhesion issue [None]
  - Night sweats [None]
  - Irritability [None]
  - Weight decreased [None]
  - Hot flush [None]
  - Depression [None]
